FAERS Safety Report 9799126 (Version 1)
Quarter: 2014Q1

REPORT INFORMATION
  Report Type: Spontaneous
  Country: IN (occurrence: None)
  Receive Date: 20140102
  Receipt Date: 20140102
  Transmission Date: 20141002
  Serious: Yes (Hospitalization)
  Sender: FDA-Public Use
  Company Number: AUR-APL-2013-10883

PATIENT
  Age: 56 Year
  Sex: Male

DRUGS (3)
  1. LEVETIRACETAM (LEVETIRACETAM) [Suspect]
     Indication: STATUS EPILEPTICUS
     Dosage: 1.5 GM, 1 D
     Route: 048
  2. LEVETIRACETAM (LEVETIRACETAM) [Suspect]
     Indication: STATUS EPILEPTICUS
     Route: 042
  3. OXCARBAZEPINE (OXCARBAZEPINE) [Concomitant]

REACTIONS (1)
  - Encephalopathy [None]
